FAERS Safety Report 15487829 (Version 1)
Quarter: 2018Q4

REPORT INFORMATION
  Report Type: Spontaneous
  Country: US (occurrence: US)
  Receive Date: 20181003
  Receipt Date: 20181003
  Transmission Date: 20190205
  Serious: Yes (Hospitalization)
  Sender: FDA-Public Use
  Company Number: None

PATIENT
  Age: 55 Year
  Sex: Female
  Weight: 87.54 kg

DRUGS (13)
  1. OTREXUP [Concomitant]
     Active Substance: METHOTREXATE
  2. ACTEMRA [Suspect]
     Active Substance: TOCILIZUMAB
     Indication: RHEUMATOID ARTHRITIS
     Route: 058
     Dates: start: 201711
  3. WARFARIN [Concomitant]
     Active Substance: WARFARIN
  4. CELEBREX [Concomitant]
     Active Substance: CELECOXIB
  5. CYMBALTA [Concomitant]
     Active Substance: DULOXETINE HYDROCHLORIDE
  6. FOLIC ACID. [Concomitant]
     Active Substance: FOLIC ACID
  7. XIIDRA DROPS [Concomitant]
  8. LYRICA [Concomitant]
     Active Substance: PREGABALIN
  9. PEPCID [Concomitant]
     Active Substance: FAMOTIDINE
  10. METOPROLOL. [Concomitant]
     Active Substance: METOPROLOL
  11. XANAX [Concomitant]
     Active Substance: ALPRAZOLAM
  12. LIPITOR [Concomitant]
     Active Substance: ATORVASTATIN CALCIUM
  13. FENOFIBRATE TAB [Concomitant]

REACTIONS (1)
  - Pneumonia [None]

NARRATIVE: CASE EVENT DATE: 20180928
